FAERS Safety Report 12653325 (Version 9)
Quarter: 2017Q1

REPORT INFORMATION
  Report Type: Report from Study
  Country: CZ (occurrence: CZ)
  Receive Date: 20160815
  Receipt Date: 20170208
  Transmission Date: 20170428
  Serious: Yes (Hospitalization)
  Sender: FDA-Public Use
  Company Number: CZ-SEATTLE GENETICS-2016SGN01256

PATIENT

DRUGS (14)
  1. TRIPLIXAM [Concomitant]
     Active Substance: AMLODIPINE BESYLATE\INDAPAMIDE\PERINDOPRIL ARGININE
     Dosage: UNK, QD
     Route: 065
     Dates: start: 201601
  2. MILURIT [Concomitant]
     Active Substance: ALLOPURINOL
     Dosage: UNK
  3. BRENTUXIMAB VEDOTIN [Suspect]
     Active Substance: BRENTUXIMAB VEDOTIN
     Indication: ANAPLASTIC LARGE-CELL LYMPHOMA
     Dosage: 180 MG, UNK
     Route: 042
     Dates: start: 20160728, end: 20160728
  4. CAVINTON [Concomitant]
     Active Substance: VINPOCETINE
     Dosage: UNK, QD
     Route: 065
     Dates: start: 201405
  5. MILURIT [Concomitant]
     Active Substance: ALLOPURINOL
     Route: 065
  6. MILURIT [Concomitant]
     Active Substance: ALLOPURINOL
     Dosage: UNK
  7. DETRALEX [Concomitant]
     Active Substance: DIOSMIN\HESPERIDIN
     Dosage: UNK
     Route: 065
     Dates: start: 201601
  8. JANUMET [Concomitant]
     Active Substance: METFORMIN HYDROCHLORIDE\SITAGLIPTIN PHOSPHATE
     Dosage: UNK, BID
     Route: 065
     Dates: start: 200805
  9. FLAVOBION [Concomitant]
     Dosage: UNK
     Route: 065
     Dates: start: 200801
  10. MILURIT [Concomitant]
     Active Substance: ALLOPURINOL
     Dosage: UNK
  11. MILURIT [Concomitant]
     Active Substance: ALLOPURINOL
     Route: 065
  12. MILURIT [Concomitant]
     Active Substance: ALLOPURINOL
     Dosage: UNK
  13. MILURIT [Concomitant]
     Active Substance: ALLOPURINOL
     Route: 065
  14. MILURIT [Concomitant]
     Active Substance: ALLOPURINOL
     Route: 065

REACTIONS (1)
  - Colitis [Recovered/Resolved with Sequelae]

NARRATIVE: CASE EVENT DATE: 20160731
